FAERS Safety Report 4471372-7 (Version None)
Quarter: 2004Q4

REPORT INFORMATION
  Report Type: 
  Country: None (occurrence: None)
  Receive Date: 20041006
  Receipt Date: 20040927
  Transmission Date: 20050328
  Serious: Yes (Other)
  Sender: FDA-Public Use
  Company Number: K200401425

PATIENT
  Age: 87 Year
  Sex: Female
  Weight: 54.4 kg

DRUGS (9)
  1. LEVOXYL [Suspect]
     Indication: HYPOTHYROIDISM
     Dosage: 50 MCG, QD, ORAL
     Route: 048
  2. PREDNISONE [Concomitant]
  3. TYLENOL [Concomitant]
  4. XANAX [Concomitant]
  5. GLUCOSAMINE W/CHONDROITIN (GLUCOSAMINE, CHONDROITIN SULFATE) [Concomitant]
  6. CALCIUM (CALCIUM) [Concomitant]
  7. MULTIVITAMINS (THIAMINE HYDROCHLORIDE, RIBOFLAVIN, RETINOL, NICOTINAMI [Concomitant]
  8. COENZYME Q10 [Concomitant]
  9. MSM (METHYLSULFONYLMETHANE) [Concomitant]

REACTIONS (6)
  - ASTHENIA [None]
  - DRUG INEFFECTIVE [None]
  - HYPOAESTHESIA [None]
  - PHARMACEUTICAL PRODUCT COMPLAINT [None]
  - SENSATION OF FOREIGN BODY [None]
  - THYROID FUNCTION TEST ABNORMAL [None]
